FAERS Safety Report 16424255 (Version 1)
Quarter: 2019Q2

REPORT INFORMATION
  Report Type: Spontaneous
  Country: FR (occurrence: FR)
  Receive Date: 20190613
  Receipt Date: 20190613
  Transmission Date: 20190711
  Serious: Yes (Other)
  Sender: FDA-Public Use
  Company Number: FR-ORION CORPORATION ORION PHARMA-19_00006358

PATIENT
  Age: 57 Year
  Sex: Female
  Weight: 66 kg

DRUGS (9)
  1. HUMIRA [Suspect]
     Active Substance: ADALIMUMAB
     Indication: PSORIASIS
     Route: 058
     Dates: start: 20151215, end: 201606
  2. SORIATANE [Suspect]
     Active Substance: ACITRETIN
     Indication: PITYRIASIS RUBRA PILARIS
     Route: 065
     Dates: start: 201804, end: 201808
  3. ENBREL [Suspect]
     Active Substance: ETANERCEPT
     Indication: PSORIASIS
     Route: 058
     Dates: start: 201503, end: 20151215
  4. METHOTREXATE (TRADE NAME UNKNOWN) [Suspect]
     Active Substance: METHOTREXATE
     Indication: PSORIASIS
     Route: 065
     Dates: start: 2014, end: 2014
  5. STELARA [Suspect]
     Active Substance: USTEKINUMAB
     Indication: PSORIASIS
     Route: 058
     Dates: start: 201606, end: 20170221
  6. RAMIPRIL. [Suspect]
     Active Substance: RAMIPRIL
     Indication: HYPERTENSION
     Route: 048
  7. TOCTINO [Suspect]
     Active Substance: ALITRETINOIN
     Indication: PITYRIASIS RUBRA PILARIS
     Route: 048
     Dates: start: 201810, end: 201905
  8. HYDROCHLOROTHIAZIDE. [Suspect]
     Active Substance: HYDROCHLOROTHIAZIDE
     Indication: HYPERTENSION
     Route: 048
  9. COSENTYX [Suspect]
     Active Substance: SECUKINUMAB
     Indication: PSORIASIS
     Dosage: 300 MG / WEEK EVERY 5 WEEKS THEN 1 TIME / MONTH THEN 1 TIME / 15 DAYS
     Route: 058
     Dates: start: 20170221, end: 201804

REACTIONS (1)
  - Breast cancer [Not Recovered/Not Resolved]

NARRATIVE: CASE EVENT DATE: 201905
